FAERS Safety Report 17792536 (Version 2)
Quarter: 2020Q2

REPORT INFORMATION
  Report Type: Spontaneous
  Country: US (occurrence: US)
  Receive Date: 20200515
  Receipt Date: 20200611
  Transmission Date: 20200714
  Serious: Yes (Hospitalization)
  Sender: FDA-Public Use
  Company Number: US-VERTEX PHARMACEUTICALS-2020-010720

PATIENT
  Sex: Male
  Weight: 55 kg

DRUGS (23)
  1. SINGULAIR [Concomitant]
     Active Substance: MONTELUKAST SODIUM
     Dosage: 1 DOSAGE FORM, QD
     Dates: start: 20200504
  2. VIBRA [DOXYCYCLINE HYCLATE] [Concomitant]
     Active Substance: DOXYCYCLINE HYCLATE
     Dosage: 1 DOSAGE FORM, BID
     Route: 048
     Dates: start: 20200330
  3. MEROPENEM. [Concomitant]
     Active Substance: MEROPENEM
     Dosage: 2000 MG EVERY 8 HOURS
     Route: 042
     Dates: start: 20190521
  4. LOTRIMIN AF [CLOTRIMAZOLE] [Concomitant]
     Dosage: UNK, BID
     Route: 061
     Dates: start: 20190204
  5. ADVAIR HFA [Concomitant]
     Active Substance: FLUTICASONE PROPIONATE\SALMETEROL XINAFOATE
     Dosage: 1 PUFF, BID
     Dates: start: 20181001
  6. BACTRIM DS [Concomitant]
     Active Substance: SULFAMETHOXAZOLE\TRIMETHOPRIM
     Dosage: 1 DOSAGE FORM, BID
     Route: 048
     Dates: start: 20200207
  7. TRIKAFTA [Suspect]
     Active Substance: ELEXACAFTOR\IVACAFTOR\TEZACAFTOR
     Indication: CYSTIC FIBROSIS
     Dosage: 2 TABS(100 MG ELEXACAFTOR/ 50 MG TEZACAFTOR/ 75 MG IVACAFTOR) IN AM; 1 TAB(150MG IVACAFTOR) IN PM
     Route: 048
     Dates: start: 20200211
  8. VITAMIN D3 [Concomitant]
     Active Substance: CHOLECALCIFEROL
     Dosage: 2 DOSAGE FORM, BID
     Route: 048
     Dates: start: 20200402
  9. RELIZORB [Concomitant]
     Dosage: 500 MILLILITER INFUSED OVERNIGHT
     Dates: start: 20190304
  10. ALBUTEROL HFA [Concomitant]
     Active Substance: ALBUTEROL SULFATE
     Indication: WHEEZING
     Dosage: 1-2 PUFFS EVERY 6 HOURS
     Dates: start: 20180925
  11. PULMOZYME [Concomitant]
     Active Substance: DORNASE ALFA
     Dosage: 2.5 MG
     Route: 055
     Dates: start: 20200515
  12. TOBI [Concomitant]
     Active Substance: TOBRAMYCIN
     Dosage: 300 MG, BID
     Route: 055
     Dates: start: 20200515
  13. NASONEX [Concomitant]
     Active Substance: MOMETASONE FUROATE
     Dosage: 2 SPRAY BY EACH NARE
     Dates: start: 20191209
  14. ZENPEP [Concomitant]
     Active Substance: PANCRELIPASE AMYLASE\PANCRELIPASE LIPASE\PANCRELIPASE PROTEASE
     Dosage: 6 CAPSULES WITH MEALS AND 4 WITH SNACKS
     Dates: start: 20190815
  15. CLARITIN [Concomitant]
     Active Substance: LORATADINE
     Dosage: 1 DOSAGE FORM, QD
     Route: 048
     Dates: start: 20200305
  16. ADVIL [IBUPROFEN] [Concomitant]
     Active Substance: IBUPROFEN
     Dosage: 1 TABLET 4 TIMES DAILY
     Route: 048
     Dates: start: 20200109
  17. SODIUM CHLORIDE. [Concomitant]
     Active Substance: SODIUM CHLORIDE
     Dosage: 4 MILLILITER, BID
     Dates: start: 20190819
  18. SCANDISHAKE MIX [Concomitant]
     Active Substance: DIETARY SUPPLEMENT
     Dosage: 1 PACKET BY TUBE, BID
     Dates: start: 20190211
  19. PEPTAMEN [Concomitant]
     Dosage: 2 CANS BY TUBE, QD
     Dates: start: 20190211
  20. ZITHROMAX [Concomitant]
     Active Substance: AZITHROMYCIN DIHYDRATE
     Dosage: 1 DOSAGE FORM THREE TIMES A WEEK
     Route: 048
     Dates: start: 20200330
  21. PRILOSEC [Concomitant]
     Active Substance: OMEPRAZOLE MAGNESIUM
     Dosage: 1 CAPSULE, BID
     Route: 048
     Dates: start: 20200518
  22. PERIACTIN [Concomitant]
     Active Substance: CYPROHEPTADINE HYDROCHLORIDE
     Dosage: 1 TABLET 4 TIMES DAILY
     Route: 048
     Dates: start: 20200109
  23. REMERON [Concomitant]
     Active Substance: MIRTAZAPINE
     Dosage: 1 DOSAGE FORM, QD
     Route: 048
     Dates: start: 20200109

REACTIONS (1)
  - Distal intestinal obstruction syndrome [Not Recovered/Not Resolved]

NARRATIVE: CASE EVENT DATE: 2020
